FAERS Safety Report 14848103 (Version 1)
Quarter: 2018Q2

REPORT INFORMATION
  Report Type: Spontaneous
  Country: IT (occurrence: IT)
  Receive Date: 20180504
  Receipt Date: 20180504
  Transmission Date: 20180711
  Serious: Yes (Hospitalization)
  Sender: FDA-Public Use
  Company Number: IT-MYLANLABS-2018M1028561

PATIENT
  Age: 32 Year
  Sex: Female

DRUGS (1)
  1. NIFEDIPINE. [Suspect]
     Active Substance: NIFEDIPINE
     Indication: PRE-ECLAMPSIA
     Dosage: UNK

REACTIONS (4)
  - Maternal exposure during pregnancy [Recovered/Resolved]
  - Product use in unapproved indication [Unknown]
  - Caesarean section [Recovered/Resolved]
  - Off label use [Unknown]
